FAERS Safety Report 7319017-2 (Version None)
Quarter: 2011Q1

REPORT INFORMATION
  Report Type: 
  Country: None (occurrence: None)
  Receive Date: 20110228
  Receipt Date: 20110225
  Transmission Date: 20110831
  Serious: Yes (Other)
  Sender: FDA-Public Use
  Company Number: US-PFIZER INC-2011042028

PATIENT
  Age: 91 Year
  Sex: Male
  Weight: 71.65 kg

DRUGS (6)
  1. AMLODIPINE BESILATE [Suspect]
     Indication: HYPERTENSION
     Dosage: 5 MG, DAILY
     Route: 048
  2. ACETYLSALICYLIC ACID [Concomitant]
     Dosage: 81 MG, 1X/DAY
  3. CARDURA [Concomitant]
     Dosage: 2 MG, 1X/DAY
  4. IMDUR [Concomitant]
     Dosage: 15 MG, 1X/DAY
     Route: 048
  5. FOLIC ACID [Concomitant]
     Dosage: 1 MG, 1X/DAY
  6. FERROUS SULFATE TAB [Concomitant]
     Dosage: 325 MG, 2X/DAY

REACTIONS (1)
  - RENAL IMPAIRMENT [None]
